FAERS Safety Report 17820825 (Version 6)
Quarter: 2022Q3

REPORT INFORMATION
  Report Type: Report from Study
  Country: US (occurrence: US)
  Receive Date: 20200525
  Receipt Date: 20220822
  Transmission Date: 20221027
  Serious: Yes (Other)
  Sender: FDA-Public Use
  Company Number: US-SHIRE-US202017113

PATIENT
  Age: 64 Year
  Sex: Female
  Weight: 81 kg

DRUGS (19)
  1. HUMAN IMMUNOGLOBULIN G\HYALURONIDASE RECOMBINANT HUMAN [Suspect]
     Active Substance: HUMAN IMMUNOGLOBULIN G\HYALURONIDASE RECOMBINANT HUMAN
     Indication: Immunodeficiency common variable
     Dosage: 40 GRAM, MONTHLY
     Route: 065
  2. HUMAN IMMUNOGLOBULIN G\HYALURONIDASE RECOMBINANT HUMAN [Suspect]
     Active Substance: HUMAN IMMUNOGLOBULIN G\HYALURONIDASE RECOMBINANT HUMAN
     Dosage: 40 GRAM, Q4WEEKS
     Route: 058
     Dates: start: 20170726
  3. ACETAMINOPHEN [Concomitant]
     Active Substance: ACETAMINOPHEN
     Route: 065
  4. DIPHENHYDRAMINE [Concomitant]
     Active Substance: DIPHENHYDRAMINE
     Route: 065
  5. SODIUM CHLORIDE [Concomitant]
     Active Substance: SODIUM CHLORIDE
     Route: 065
  6. EPINEPHRINE [Concomitant]
     Active Substance: EPINEPHRINE
     Route: 065
  7. MIRTAZAPINE [Concomitant]
     Active Substance: MIRTAZAPINE
     Route: 065
  8. AMLODIPINE [Concomitant]
     Active Substance: AMLODIPINE BESYLATE
     Route: 065
  9. MONTELUKAST [Concomitant]
     Active Substance: MONTELUKAST SODIUM
     Route: 065
  10. ATENOLOL [Concomitant]
     Active Substance: ATENOLOL
     Route: 065
  11. LORATADINE [Concomitant]
     Active Substance: LORATADINE
     Route: 065
  12. IBUPROFEN [Concomitant]
     Active Substance: IBUPROFEN
     Route: 065
  13. FLUTICASONE [Concomitant]
     Active Substance: FLUTICASONE
     Route: 065
  14. LEVOTHYROXINE [Concomitant]
     Active Substance: LEVOTHYROXINE
     Route: 065
  15. ATORVASTATIN [Concomitant]
     Active Substance: ATORVASTATIN
     Route: 065
  16. LEVETIRACETAM [Concomitant]
     Active Substance: LEVETIRACETAM
     Route: 065
  17. QUETIAPINE [Concomitant]
     Active Substance: QUETIAPINE
     Route: 065
  18. CYCLOBENZAPRINE [Concomitant]
     Active Substance: CYCLOBENZAPRINE
     Route: 065
  19. ALLER FLO [Concomitant]
     Route: 065

REACTIONS (11)
  - Ankle fracture [Unknown]
  - Injection site haemorrhage [Unknown]
  - Fall [Unknown]
  - Depression [Recovering/Resolving]
  - Feeling abnormal [Recovering/Resolving]
  - Bronchitis [Unknown]
  - Infusion site pain [Unknown]
  - Therapy interrupted [Unknown]
  - Needle issue [Unknown]
  - Product dose omission issue [Unknown]
  - Insurance issue [Unknown]

NARRATIVE: CASE EVENT DATE: 20210404
